FAERS Safety Report 4546902-7 (Version None)
Quarter: 2005Q1

REPORT INFORMATION
  Report Type: 
  Country: None (occurrence: None)
  Receive Date: 20050105
  Receipt Date: 20041216
  Transmission Date: 20050727
  Serious: Yes (Hospitalization)
  Sender: FDA-Public Use
  Company Number: B0361964A

PATIENT
  Age: 58 Year
  Sex: Female

DRUGS (10)
  1. LITHIUM CARBONATE [Suspect]
     Indication: BIPOLAR DISORDER
  2. HALOPERIDOL [Concomitant]
  3. LORAZEPAM [Concomitant]
  4. BIPERIDEN HYDROCHLORIDE TAB [Concomitant]
  5. METHOTRIMEPRAZINE [Concomitant]
  6. CAPTOPRIL [Concomitant]
  7. FLUVASTATIN SODIUM [Concomitant]
  8. ALLOPURINOL [Concomitant]
  9. FRUSEMIDE [Concomitant]
  10. NIMODIPINE [Concomitant]

REACTIONS (12)
  - DEPRESSED LEVEL OF CONSCIOUSNESS [None]
  - DISORIENTATION [None]
  - DRUG LEVEL CHANGED [None]
  - DYSARTHRIA [None]
  - DYSKINESIA [None]
  - ENCEPHALOPATHY [None]
  - HAEMODIALYSIS [None]
  - INCOHERENT [None]
  - NEUROTOXICITY [None]
  - SOMNOLENCE [None]
  - THERAPEUTIC AGENT TOXICITY [None]
  - URINARY TRACT INFECTION [None]
